FAERS Safety Report 4438542-5 (Version None)
Quarter: 2004Q3

REPORT INFORMATION
  Report Type: 
  Country: None (occurrence: None)
  Receive Date: 20040726
  Receipt Date: 20040401
  Transmission Date: 20050211
  Serious: No
  Sender: FDA-Public Use
  Company Number: USA040463874

PATIENT
  Age: 39 Year
  Sex: Female

DRUGS (10)
  1. FORTEO [Suspect]
     Indication: OSTEOPOROSIS
     Dates: start: 20040316
  2. SKELAKIN (METAXALONE) [Concomitant]
  3. PREVACID [Concomitant]
  4. PENTA-TRIAMTERENE HCTZ [Concomitant]
  5. METHOTREXATE [Concomitant]
  6. COUMADIN [Concomitant]
  7. FOLIC ACID [Concomitant]
  8. ZYRTEC-D 12 HOUR [Concomitant]
  9. MULTIVITAMIN [Concomitant]
  10. ULTRAM [Concomitant]

REACTIONS (2)
  - MEDICATION ERROR [None]
  - OVERDOSE [None]
